FAERS Safety Report 8196757-7 (Version None)
Quarter: 2012Q1

REPORT INFORMATION
  Report Type: 
  Country: None (occurrence: None)
  Receive Date: 20120309
  Receipt Date: 20120229
  Transmission Date: 20120608
  Serious: Yes (Other)
  Sender: FDA-Public Use
  Company Number: PHEH2012US004811

PATIENT
  Sex: Female

DRUGS (5)
  1. LOPRESSOR [Suspect]
     Dosage: 50 MG
  2. AMOXICILLIN [Concomitant]
  3. SPIRIVA [Suspect]
  4. ASPIRIN [Concomitant]
  5. PRAVASTATIN [Concomitant]

REACTIONS (2)
  - ATRIAL FIBRILLATION [None]
  - SECRETION DISCHARGE [None]
